FAERS Safety Report 8654136 (Version 6)
Quarter: 2014Q3

REPORT INFORMATION
  Report Type: Spontaneous
  Country: US (occurrence: US)
  Receive Date: 20120709
  Receipt Date: 20140818
  Transmission Date: 20150326
  Serious: Yes (Hospitalization)
  Sender: FDA-Public Use
  Company Number: US-MERCK-2012SP036942

PATIENT
  Sex: Female
  Weight: 99.77 kg

DRUGS (1)
  1. NUVARING [Suspect]
     Active Substance: ETHINYL ESTRADIOL\ETONOGESTREL
     Indication: CONTRACEPTION
     Dosage: UNK
     Route: 067
     Dates: start: 2009, end: 20090727

REACTIONS (15)
  - Deep vein thrombosis [Recovering/Resolving]
  - Venous stent insertion [Unknown]
  - Angioplasty [Unknown]
  - Weight decreased [Unknown]
  - Vena cava filter insertion [Unknown]
  - Deep vein thrombosis [Unknown]
  - Venous occlusion [Not Recovered/Not Resolved]
  - Treatment failure [Unknown]
  - Depression [Unknown]
  - Thrombophlebitis [Unknown]
  - Fibrocystic breast disease [Unknown]
  - Breast cyst excision [Unknown]
  - Post thrombotic syndrome [Unknown]
  - Anxiety [Unknown]
  - Irritability [Unknown]

NARRATIVE: CASE EVENT DATE: 200907
